FAERS Safety Report 9477190 (Version 1)
Quarter: 2013Q3

REPORT INFORMATION
  Report Type: Not Available
  Country: US (occurrence: US)
  Receive Date: 20130826
  Receipt Date: 20130826
  Transmission Date: 20140515
  Serious: No
  Sender: FDA-Public Use
  Company Number: US-AMARIN PHARMA, INC.-2013AMR000041

PATIENT
  Sex: Male

DRUGS (1)
  1. VASCEPA [Suspect]
     Indication: HYPERTRIGLYCERIDAEMIA
     Route: 065
     Dates: start: 201306

REACTIONS (1)
  - Diarrhoea [Unknown]
